FAERS Safety Report 5535026-8 (Version None)
Quarter: 2007Q4

REPORT INFORMATION
  Report Type: 
  Country: None (occurrence: None)
  Receive Date: 20071203
  Receipt Date: 20071120
  Transmission Date: 20080405
  Serious: Yes (Other)
  Sender: FDA-Public Use
  Company Number: 07-001967

PATIENT
  Age: 17 Year
  Sex: Female
  Weight: 49.9 kg

DRUGS (2)
  1. FEMCON FE [Suspect]
     Indication: CONTRACEPTION
     Dosage: 0.4MG/35MCG, QD, ORAL
     Route: 048
     Dates: start: 20070501, end: 20070901
  2. LOESTRIN 24 FE [Suspect]
     Indication: CONTRACEPTION
     Dosage: 20/1000UG, QD, ORAL
     Route: 048
     Dates: start: 20060801, end: 20070501

REACTIONS (6)
  - ABORTION SPONTANEOUS [None]
  - DRUG EXPOSURE DURING PREGNANCY [None]
  - DRUG INEFFECTIVE [None]
  - HAEMORRHAGE [None]
  - METRORRHAGIA [None]
  - PREGNANCY [None]
